FAERS Safety Report 5041916-5 (Version None)
Quarter: 2006Q2

REPORT INFORMATION
  Report Type: 
  Country: None (occurrence: None)
  Receive Date: 20060627
  Receipt Date: 20060616
  Transmission Date: 20061013
  Serious: Yes (Other)
  Sender: FDA-Public Use
  Company Number: CIP06001189

PATIENT
  Age: 54 Year
  Sex: Female
  Weight: 77.6 kg

DRUGS (8)
  1. ACTONEL [Suspect]
     Indication: OSTEOPOROSIS
     Dosage: 35 MG ONCE WEEKLY, ORAL
     Route: 048
     Dates: start: 20050101, end: 20060201
  2. FIORICET [Concomitant]
  3. IMITREX CERENEX (SUMATRIPTAN SUCCINATE) [Concomitant]
  4. MOBIC [Concomitant]
  5. LIPITOR [Concomitant]
  6. CELEXA [Concomitant]
  7. HYDROCHLOROTHIAZIDE [Concomitant]
  8. ZESTRIL [Concomitant]

REACTIONS (5)
  - DRY SOCKET [None]
  - JAW DISORDER [None]
  - OSTEONECROSIS [None]
  - POST PROCEDURAL COMPLICATION [None]
  - TOOTH EXTRACTION [None]
